FAERS Safety Report 7137874-X (Version None)
Quarter: 2010Q4

REPORT INFORMATION
  Report Type: 
  Country: None (occurrence: None)
  Receive Date: 20101206
  Receipt Date: 20101130
  Transmission Date: 20110411
  Serious: Yes (Other)
  Sender: FDA-Public Use
  Company Number: US-AMGEN-QUU397676

PATIENT

DRUGS (3)
  1. NPLATE [Suspect]
     Indication: IDIOPATHIC THROMBOCYTOPENIC PURPURA
     Dosage: UNK UNK, UNK
     Dates: start: 20090612
  2. CORTICOSTEROID NOS [Concomitant]
     Dosage: UNK UNK, UNK
     Dates: start: 20080109
  3. AZATHIOPRINE [Concomitant]
     Dosage: UNK UNK, UNK
     Dates: start: 20080619

REACTIONS (3)
  - CROHN'S DISEASE [None]
  - INTESTINAL RESECTION [None]
  - OSTEOMYELITIS [None]
